FAERS Safety Report 8830691 (Version 1)
Quarter: 2012Q4

REPORT INFORMATION
  Report Type: 
  Country: BR (occurrence: BR)
  Receive Date: 20121009
  Receipt Date: 20121009
  Transmission Date: 20130627
  Serious: Yes (Hospitalization, Other)
  Sender: FDA-Public Use
  Company Number: PHHY2012BR087498

PATIENT
  Sex: Female

DRUGS (1)
  1. DIOVAN [Suspect]
     Indication: HYPERTENSION
     Dosage: 1 DF in the morning
     Route: 048

REACTIONS (3)
  - Ischaemia [Recovered/Resolved]
  - Blood pressure inadequately controlled [Recovered/Resolved]
  - Discomfort [Recovered/Resolved]
